FAERS Safety Report 8364125-0 (Version None)
Quarter: 2012Q1

REPORT INFORMATION
  Report Type: 
  Country: None (occurrence: None)
  Receive Date: 20120323
  Receipt Date: 20111223
  Transmission Date: 20120608
  Serious: Yes (Hospitalization)
  Sender: FDA-Public Use
  Company Number: 163-21880-11123472

PATIENT
  Age: 83 Year
  Sex: Male
  Weight: 79.4 kg

DRUGS (1)
  1. REVLIMID [Suspect]
     Indication: PRODUCT USED FOR UNKNOWN INDICATION
     Dosage: 10 MG, DAILY X7 DAYS, OFF 7 DAYS, REPEAT CYCLE, PO
     Route: 048
     Dates: start: 20110803

REACTIONS (1)
  - ABDOMINAL PAIN UPPER [None]
